FAERS Safety Report 21655301 (Version 1)
Quarter: 2022Q4

REPORT INFORMATION
  Report Type: Spontaneous
  Country: US (occurrence: US)
  Receive Date: 20221129
  Receipt Date: 20221129
  Transmission Date: 20230113
  Serious: No
  Sender: FDA-Public Use
  Company Number: US-JNJFOC-20221141686

PATIENT
  Sex: Female

DRUGS (2)
  1. REMICADE [Suspect]
     Active Substance: INFLIXIMAB
     Indication: Crohn^s disease
     Route: 041
     Dates: start: 202112, end: 2022
  2. PREDNISONE [Concomitant]
     Active Substance: PREDNISONE
     Indication: Premedication

REACTIONS (4)
  - Rash [Unknown]
  - Swelling [Unknown]
  - Palpitations [Unknown]
  - Drug level below therapeutic [Unknown]
